FAERS Safety Report 10156251 (Version 3)
Quarter: 2014Q3

REPORT INFORMATION
  Report Type: Spontaneous
  Country: DE (occurrence: DE)
  Receive Date: 20140507
  Receipt Date: 20140930
  Transmission Date: 20150326
  Serious: Yes (Other)
  Sender: FDA-Public Use
  Company Number: DE-BEH-2014042248

PATIENT
  Age: 14 Year
  Sex: Male
  Weight: 48 kg

DRUGS (6)
  1. PRIVIGEN [Suspect]
     Active Substance: HUMAN IMMUNOGLOBULIN G
     Indication: HYPOGLOBULINAEMIA
     Route: 042
     Dates: start: 20131119, end: 20131119
  2. VITAMINS [Concomitant]
     Active Substance: VITAMINS
  3. MULTIVITAMIN (A,D,E,C) [Concomitant]
     Dosage: 4 X 20 DROPS
     Route: 048
  4. AMPHO MORONAL [Concomitant]
     Indication: ANTIFUNGAL PROPHYLAXIS
     Dosage: 3 X 1 TABLET
     Route: 048
  5. SEMPERA [Concomitant]
     Active Substance: ITRACONAZOLE
     Indication: ANTIFUNGAL PROPHYLAXIS
     Dosage: 2 X 200 MG
     Route: 048
  6. KEPINOL [Concomitant]
     Active Substance: SULFAMETHOXAZOLE\TRIMETHOPRIM
     Indication: ANTIFUNGAL PROPHYLAXIS
     Dosage: 2 X 80 G

REACTIONS (9)
  - Anaphylactic reaction [Recovered/Resolved]
  - Dyspnoea [Recovered/Resolved]
  - Cardiovascular disorder [Recovered/Resolved]
  - Chills [Recovered/Resolved]
  - Mean arterial pressure decreased [Recovered/Resolved]
  - Blood pressure decreased [Recovered/Resolved]
  - Pyrexia [Recovered/Resolved]
  - Hypersensitivity [Recovered/Resolved]
  - Hypotension [Recovered/Resolved]

NARRATIVE: CASE EVENT DATE: 20131119
